FAERS Safety Report 11087568 (Version 2)
Quarter: 2015Q2

REPORT INFORMATION
  Report Type: Spontaneous
  Country: CL (occurrence: CL)
  Receive Date: 20150504
  Receipt Date: 20150520
  Transmission Date: 20150821
  Serious: Yes (Hospitalization, Other)
  Sender: FDA-Public Use
  Company Number: CL-WATSON-2015-09252

PATIENT
  Age: 34 Year
  Sex: Female

DRUGS (6)
  1. METRONIDAZOLE (UNKNOWN) [Suspect]
     Active Substance: BISMUTH SUBSALICYLATE\METRONIDAZOLE\TETRACYCLINE HYDROCHLORIDE
     Indication: LIVER ABSCESS
     Dosage: 73.5 G, TOTAL
     Route: 065
  2. AMPICILLIN [Concomitant]
     Active Substance: AMPICILLIN
     Indication: LIVER ABSCESS
     Dosage: 1 G, Q6H
     Route: 065
  3. METRONIDAZOLE (UNKNOWN) [Suspect]
     Active Substance: BISMUTH SUBSALICYLATE\METRONIDAZOLE\TETRACYCLINE HYDROCHLORIDE
     Indication: HEPATIC CYST
  4. LINEZOLID. [Concomitant]
     Active Substance: LINEZOLID
     Indication: LIVER ABSCESS
     Dosage: 600 MG, BID( EVERY 12 HOURS)
     Route: 065
  5. CEFTRIAXONE. [Concomitant]
     Active Substance: CEFTRIAXONE
     Indication: LIVER ABSCESS
     Dosage: 2 G, DAILY
     Route: 065
  6. CIPROFLOXACIN. [Concomitant]
     Active Substance: CIPROFLOXACIN
     Indication: LIVER ABSCESS
     Dosage: 750 MG, BID( EVERY 12 HOURS)
     Route: 065

REACTIONS (2)
  - Neuropathy peripheral [Recovered/Resolved]
  - Cerebellar syndrome [Recovered/Resolved]
